FAERS Safety Report 8294135-3 (Version None)
Quarter: 2012Q2

REPORT INFORMATION
  Report Type: 
  Country: None (occurrence: None)
  Receive Date: 20120418
  Receipt Date: 20120410
  Transmission Date: 20120825
  Serious: Yes (Hospitalization, Other)
  Sender: FDA-Public Use
  Company Number: PHHY2012JP027786

PATIENT
  Sex: Female
  Weight: 38 kg

DRUGS (9)
  1. HALOPERIDOL [Concomitant]
     Indication: NAUSEA
     Dosage: 5 MG, UNK
     Route: 041
     Dates: start: 20120329, end: 20120402
  2. BETAMETHASONE [Concomitant]
     Indication: CANCER PAIN
     Dosage: 8 MG, UNK
     Route: 041
     Dates: start: 20120330, end: 20120402
  3. DEXAMETHASONE SODIUM PHOSPHATE [Concomitant]
     Indication: CANCER PAIN
     Dosage: 1.65 MG, UNK
     Route: 041
     Dates: start: 20120329, end: 20120329
  4. SANDOSTATIN [Concomitant]
     Indication: MALIGNANT ASCITES
     Dosage: 300 UG, UNK
     Route: 058
     Dates: start: 20120329, end: 20120402
  5. FLURBIPROFEN [Concomitant]
     Indication: CANCER PAIN
     Dosage: 150 MG, UNK
     Route: 041
     Dates: start: 20120329, end: 20120404
  6. CELEBREX [Concomitant]
     Indication: CANCER PAIN
     Dosage: 200 MG, UNK
     Route: 048
     Dates: start: 20110507
  7. MORPHINE HYDROCHLORIDE HYDRATE [Concomitant]
     Indication: CANCER PAIN
     Dosage: 42.6 MG, UNK
     Route: 041
     Dates: start: 20120329, end: 20120402
  8. MS CONTIN [Concomitant]
     Indication: CANCER PAIN
     Dosage: 120 MG, UNK
     Route: 048
     Dates: start: 20120327, end: 20120328
  9. ZOMETA [Suspect]
     Indication: METASTASES TO BONE
     Dosage: 4 MG DAILY
     Route: 041
     Dates: start: 20120324, end: 20120324

REACTIONS (16)
  - VOMITING [None]
  - LYMPHOCYTE COUNT DECREASED [None]
  - RED BLOOD CELL COUNT DECREASED [None]
  - HYPOCALCAEMIA [None]
  - DYSPNOEA [None]
  - HAEMATOCRIT DECREASED [None]
  - PLEURAL EFFUSION [None]
  - BLOOD CREATININE DECREASED [None]
  - HAEMOGLOBIN DECREASED [None]
  - MUSCULOSKELETAL STIFFNESS [None]
  - BLOOD LACTATE DEHYDROGENASE INCREASED [None]
  - NAUSEA [None]
  - PYREXIA [None]
  - GENERAL PHYSICAL HEALTH DETERIORATION [None]
  - BLOOD ALBUMIN DECREASED [None]
  - MONOCYTE COUNT DECREASED [None]
